FAERS Safety Report 11129049 (Version 1)
Quarter: 2015Q2

REPORT INFORMATION
  Report Type: Spontaneous
  Country: US (occurrence: US)
  Receive Date: 20150521
  Receipt Date: 20150521
  Transmission Date: 20150821
  Serious: No
  Sender: FDA-Public Use
  Company Number: US-MALLINCKRODT-QSC-2014-0115

PATIENT
  Sex: Male

DRUGS (1)
  1. H.P. ACTHAR [Suspect]
     Active Substance: CORTICOTROPIN
     Indication: PROTEINURIA
     Dosage: 80 UNITS, BIW
     Route: 058
     Dates: start: 20140118

REACTIONS (6)
  - Lower respiratory tract infection [Unknown]
  - Nasopharyngitis [Not Recovered/Not Resolved]
  - Weight increased [Unknown]
  - Arthralgia [Unknown]
  - Headache [Unknown]
  - Cough [Unknown]

NARRATIVE: CASE EVENT DATE: 2014
